FAERS Safety Report 11858989 (Version 1)
Quarter: 2015Q4

REPORT INFORMATION
  Report Type: Spontaneous
  Country: US (occurrence: US)
  Receive Date: 20151222
  Receipt Date: 20151222
  Transmission Date: 20160305
  Serious: Yes (Other)
  Sender: FDA-Public Use
  Company Number: US-CIPLA LTD.-2015US09427

PATIENT

DRUGS (5)
  1. ABT-751 [Suspect]
     Active Substance: INVESTIGATIONAL PRODUCT
     Indication: COLORECTAL CANCER
     Dosage: 150 MG, ORALLY ONCE DAILY AS MONOTHERAPY FROM DAY -14 TO DAY -8 DURING THE LEAD-IN PERIOD
     Route: 048
  2. DEXAMETHASONE. [Suspect]
     Active Substance: DEXAMETHASONE
     Indication: PROPHYLAXIS OF NAUSEA AND VOMITING
     Route: 065
  3. CAPECITABINE. [Suspect]
     Active Substance: CAPECITABINE
     Indication: COLORECTAL CANCER
     Dosage: 2000 MG/M2, ORALLY DIVIDED INTO TWICE DAILY DOSING DAYS 1-14
     Route: 048
  4. ABT-751 [Suspect]
     Active Substance: INVESTIGATIONAL PRODUCT
     Dosage: 150 MG ORALLY ONCE DAILY DAYS 1-14
     Route: 048
  5. IRINOTECAN [Suspect]
     Active Substance: IRINOTECAN
     Indication: COLORECTAL CANCER
     Dosage: 250 MG/M2, INTRAVENOUSLY OVER TWO HOURS ON DAY 1
     Route: 042

REACTIONS (1)
  - Neuropathy peripheral [Unknown]
